FAERS Safety Report 24570666 (Version 1)
Quarter: 2024Q4

REPORT INFORMATION
  Report Type: Spontaneous
  Country: US (occurrence: US)
  Receive Date: 20241031
  Receipt Date: 20241031
  Transmission Date: 20250115
  Serious: No
  Sender: TEVA
  Company Number: US-TEVA-VS-3253973

PATIENT
  Age: 56 Year
  Sex: Female

DRUGS (1)
  1. NEOMYCIN [Suspect]
     Active Substance: NEOMYCIN
     Indication: Gastrointestinal microorganism overgrowth
     Dosage: 500 MG IN THE AM AND 500 MG IN THE PM
     Route: 065
     Dates: start: 20240814, end: 20240823

REACTIONS (4)
  - Tendonitis [Unknown]
  - Nerve injury [Unknown]
  - Cardiac disorder [Unknown]
  - Muscular weakness [Unknown]

NARRATIVE: CASE EVENT DATE: 20240801
